FAERS Safety Report 5454861-8 (Version None)
Quarter: 2007Q3

REPORT INFORMATION
  Report Type: 
  Country: None (occurrence: None)
  Receive Date: 20070917
  Receipt Date: 20061116
  Transmission Date: 20080115
  Serious: No
  Sender: FDA-Public Use
  Company Number: US-ASTRAZENECA-2006UW19429

PATIENT
  Age: 53 Year
  Sex: Female
  Weight: 59.1 kg

DRUGS (9)
  1. SEROQUEL [Suspect]
     Indication: BIPOLAR DISORDER
     Dosage: 100 MG TABLET SPLIT IN HALF
     Route: 048
     Dates: start: 20060915, end: 20060930
  2. SEROQUEL [Suspect]
     Indication: ANXIETY
     Dosage: 100 MG TABLET SPLIT IN HALF
     Route: 048
     Dates: start: 20060915, end: 20060930
  3. SEROQUEL [Suspect]
     Indication: DEPRESSION
     Dosage: 100 MG TABLET SPLIT IN HALF
     Route: 048
     Dates: start: 20060915, end: 20060930
  4. LITHIUM [Concomitant]
     Route: 048
     Dates: start: 20020101
  5. KLONOPIN [Concomitant]
     Route: 048
     Dates: start: 20020101
  6. TOPROL-XL [Concomitant]
  7. NORVASC [Concomitant]
  8. ASPIRIN [Concomitant]
  9. ZOLOFT [Concomitant]
     Route: 048
     Dates: start: 20020101

REACTIONS (4)
  - ANXIETY [None]
  - IRRITABILITY [None]
  - SOMNOLENCE [None]
  - TENSION [None]
